FAERS Safety Report 4977392-8 (Version None)
Quarter: 2006Q2

REPORT INFORMATION
  Report Type: 
  Country: None (occurrence: None)
  Receive Date: 20060413
  Receipt Date: 20060202
  Transmission Date: 20061013
  Serious: Yes (Disabling)
  Sender: FDA-Public Use
  Company Number: 8016191

PATIENT
  Age: 23 Month
  Sex: Male

DRUGS (8)
  1. KEPPRA [Suspect]
     Indication: CONVULSION
     Dosage: 50 MG/D PO
     Route: 048
     Dates: start: 20050822
  2. KEPPRA [Suspect]
     Indication: CONVULSION
     Dosage: 100 MG /D PO
     Route: 048
  3. KEPPRA [Suspect]
     Indication: CONVULSION
     Dosage: 150 MG/ D PO
     Route: 048
  4. KEPPRA [Suspect]
     Indication: CONVULSION
     Dosage: 100 MG 2/ D PO
     Route: 048
     Dates: end: 20051201
  5. KEPPRA [Suspect]
     Indication: CONVULSION
     Dosage: PO
     Route: 048
     Dates: start: 20051201, end: 20060101
  6. EPILIM [Concomitant]
  7. CLOBAZAM [Concomitant]
  8. LAMOTRIGINE [Concomitant]

REACTIONS (3)
  - DECREASED APPETITE [None]
  - DYSPHAGIA [None]
  - WEIGHT DECREASED [None]
